FAERS Safety Report 25549342 (Version 5)
Quarter: 2025Q3

REPORT INFORMATION
  Report Type: Report from Study
  Country: US (occurrence: US)
  Receive Date: 20250714
  Receipt Date: 20250812
  Transmission Date: 20251020
  Serious: No
  Sender: MALLINCKRODT
  Company Number: US-MALLINCKRODT-MNK202504177

PATIENT
  Age: 7 Month
  Sex: Female
  Weight: 6 kg

DRUGS (4)
  1. CORTICOTROPIN [Suspect]
     Active Substance: CORTICOTROPIN
     Indication: Infantile spasms
     Route: 030
     Dates: start: 20250702, end: 202507
  2. CORTICOTROPIN [Suspect]
     Active Substance: CORTICOTROPIN
     Route: 030
     Dates: start: 202507, end: 202507
  3. CORTICOTROPIN [Suspect]
     Active Substance: CORTICOTROPIN
     Dates: start: 20250728, end: 20250729
  4. CORTICOTROPIN [Suspect]
     Active Substance: CORTICOTROPIN
     Dates: start: 20250730

REACTIONS (9)
  - Dysphonia [Unknown]
  - Skin discolouration [Recovering/Resolving]
  - Crying [Recovered/Resolved]
  - Irritability [Recovering/Resolving]
  - Fatigue [Not Recovered/Not Resolved]
  - Increased appetite [Recovering/Resolving]
  - Weight increased [Unknown]
  - Anger [Recovering/Resolving]
  - Injection site bruising [Unknown]

NARRATIVE: CASE EVENT DATE: 20250101
